FAERS Safety Report 6927486-2 (Version None)
Quarter: 2010Q3

REPORT INFORMATION
  Report Type: 
  Country: None (occurrence: None)
  Receive Date: 20100812
  Receipt Date: 20100727
  Transmission Date: 20110219
  Serious: Yes (Hospitalization, Other)
  Sender: FDA-Public Use
  Company Number: ACO_01590_2010

PATIENT
  Sex: Female

DRUGS (12)
  1. AMPYRA [Suspect]
     Indication: GAIT DISTURBANCE
     Dosage: 10 MG BID ORAL
     Route: 048
     Dates: start: 20100701, end: 20100701
  2. VITAMIN D [Concomitant]
  3. VITAMIN B12 NOS [Concomitant]
  4. TYLENOL (CAPLET) [Concomitant]
  5. PROZAC [Concomitant]
  6. COPAXONE /03175301/ [Concomitant]
  7. SYNTHROID [Concomitant]
  8. PROVIGIL [Concomitant]
  9. SOLU-MEDROL [Concomitant]
  10. FLOMAX [Concomitant]
  11. BACLOFEN [Concomitant]
  12. BONIVA [Concomitant]

REACTIONS (5)
  - BLADDER DYSFUNCTION [None]
  - FACE INJURY [None]
  - FALL [None]
  - GRAND MAL CONVULSION [None]
  - INCORRECT DOSE ADMINISTERED [None]
